FAERS Safety Report 5371470-X (Version None)
Quarter: 2007Q2

REPORT INFORMATION
  Report Type: 
  Country: None (occurrence: None)
  Receive Date: 20070615
  Receipt Date: 20070329
  Transmission Date: 20071010
  Serious: Yes (Other)
  Sender: FDA-Public Use
  Company Number: 200711527US

PATIENT
  Age: 64 Year
  Sex: Male
  Weight: 119.3 kg

DRUGS (15)
  1. LANTUS [Suspect]
     Indication: DIABETES MELLITUS NON-INSULIN-DEPENDENT
     Dosage: 85 U QAM
     Dates: start: 20050212
  2. METFORMIN HYDROCHLORIDE [Concomitant]
  3. AVANDIA [Concomitant]
  4. PARACETAMOL, PSEUDOEPHEDRINE HYDROCHLORIDE (TYLENOL SINUS) [Concomitant]
  5. AMOXICILLIN [Concomitant]
  6. ISOSORBIDE DINITRATE [Concomitant]
  7. PLAVIX [Concomitant]
  8. ALLOPURINOL [Concomitant]
  9. DILTIAZEM HYDROCHLORIDE [Concomitant]
  10. ZOCOR [Concomitant]
  11. FOSINOPRIL SODIUM [Concomitant]
  12. HYDROCHLOROTHIAZIDE [Concomitant]
  13. ATENOLOL [Concomitant]
  14. NICOTINIC ACID (NIASPAN) [Concomitant]
  15. CELEBREX [Concomitant]

REACTIONS (7)
  - BLOOD GLUCOSE INCREASED [None]
  - DISORIENTATION [None]
  - DRUG ADMINISTRATION ERROR [None]
  - DRUG INEFFECTIVE [None]
  - HYPERHIDROSIS [None]
  - HYPOGLYCAEMIA [None]
  - TREMOR [None]
